FAERS Safety Report 14475683 (Version 1)
Quarter: 2018Q1

REPORT INFORMATION
  Report Type: Other
  Country: FR (occurrence: FR)
  Receive Date: 20180201
  Receipt Date: 20180201
  Transmission Date: 20180509
  Serious: Yes (Life-Threatening)
  Sender: FDA-Public Use
  Company Number: FR-SEATTLE GENETICS-2018SGN00160

PATIENT
  Age: 38 Year
  Sex: Male
  Weight: 115 kg

DRUGS (1)
  1. ADCETRIS [Suspect]
     Active Substance: BRENTUXIMAB VEDOTIN
     Indication: HODGKIN^S DISEASE
     Dosage: UNK
     Route: 042

REACTIONS (2)
  - Choking [Recovered/Resolved]
  - Generalised erythema [Recovered/Resolved]

NARRATIVE: CASE EVENT DATE: 201712
